FAERS Safety Report 16685882 (Version 1)
Quarter: 2019Q3

REPORT INFORMATION
  Report Type: Spontaneous
  Country: US (occurrence: US)
  Receive Date: 20190809
  Receipt Date: 20190809
  Transmission Date: 20191004
  Serious: No
  Sender: FDA-Public Use
  Company Number: US-JNJFOC-20190808500

PATIENT
  Sex: Male
  Weight: 81.27 kg

DRUGS (1)
  1. MENS ROGAINE EXTRA STRENGTH [Suspect]
     Active Substance: MINOXIDIL
     Indication: ALOPECIA
     Dosage: 10 ML TWICE
     Route: 061

REACTIONS (4)
  - Overdose [Recovering/Resolving]
  - Application site erythema [Recovering/Resolving]
  - Application site swelling [Recovered/Resolved]
  - Application site irritation [Recovered/Resolved]
